FAERS Safety Report 13654235 (Version 1)
Quarter: 2017Q2

REPORT INFORMATION
  Report Type: Spontaneous
  Country: FR (occurrence: FR)
  Receive Date: 20170614
  Receipt Date: 20170614
  Transmission Date: 20170830
  Serious: Yes (Other)
  Sender: FDA-Public Use
  Company Number: PHHY2017FR085250

PATIENT
  Age: 11 Year

DRUGS (1)
  1. TACROLIMUS. [Suspect]
     Active Substance: TACROLIMUS
     Indication: CROHN^S DISEASE
     Dosage: BETWEEN 0.05 AND 0.2 MG/KG, Q12H
     Route: 048

REACTIONS (1)
  - Crohn^s disease [Unknown]
